FAERS Safety Report 7434632-3 (Version None)
Quarter: 2011Q2

REPORT INFORMATION
  Report Type: 
  Country: None (occurrence: None)
  Receive Date: 20110414
  Receipt Date: 20110403
  Transmission Date: 20111010
  Serious: Yes (Other)
  Sender: FDA-Public Use
  Company Number: BR-001651

PATIENT
  Sex: Female
  Weight: 26.8 kg

DRUGS (2)
  1. NAGLAZYME [Suspect]
     Indication: MUCOPOLYSACCHARIDOSIS VI
     Dosage: 0.75 MG/KG 1X/WEEK; INTRAVENOUS DRIP
     Route: 041
     Dates: start: 20090219
  2. ACETAMINOPHEN [Concomitant]

REACTIONS (2)
  - ATAXIA [None]
  - CERVICAL CORD COMPRESSION [None]
